FAERS Safety Report 4422212-3 (Version None)
Quarter: 2004Q3

REPORT INFORMATION
  Report Type: 
  Country: None (occurrence: None)
  Receive Date: 20040712
  Receipt Date: 20031202
  Transmission Date: 20050211
  Serious: Yes (Hospitalization)
  Sender: FDA-Public Use
  Company Number: TAP2003Q02839

PATIENT
  Age: 81 Year
  Sex: Female
  Weight: 49.8957 kg

DRUGS (8)
  1. PREVACID [Suspect]
     Indication: GASTROOESOPHAGEAL REFLUX DISEASE
     Dosage: 30 MG, 1 IN 1 D, PER ORAL
     Route: 048
     Dates: start: 20010101, end: 20031202
  2. FLOVENT [Concomitant]
  3. ALBUTEROL (SALBUTAMOL SULFATE) [Concomitant]
  4. IPRATROPIUM (IPRATROPIUM BROMIDE) [Concomitant]
  5. CENTRUM SILVER (CENTRUM SILVER) [Concomitant]
  6. MUCO-FEN (TUSSIN DM) [Concomitant]
  7. GENERIC RESTORIL (TEMAZEPAM) [Concomitant]
  8. LORAZEPAM [Concomitant]

REACTIONS (3)
  - ABDOMINAL PAIN [None]
  - ASTHENIA [None]
  - DIARRHOEA [None]
